FAERS Safety Report 25984353 (Version 3)
Quarter: 2025Q4

REPORT INFORMATION
  Report Type: Spontaneous
  Country: JP (occurrence: JP)
  Receive Date: 20251031
  Receipt Date: 20251230
  Transmission Date: 20260118
  Serious: Yes (Other)
  Sender: ALEXION PHARMACEUTICALS
  Company Number: JP-ASTRAZENECA-202510JPN025770JP

PATIENT
  Age: 70 Year
  Sex: Male

DRUGS (2)
  1. IMFINZI [Suspect]
     Active Substance: DURVALUMAB
     Indication: Hepatocellular carcinoma
     Dosage: UNK
     Route: 065
  2. IMJUDO [Suspect]
     Active Substance: TREMELIMUMAB\TREMELIMUMAB-ACTL
     Indication: Hepatocellular carcinoma
     Dosage: UNK
     Route: 065

REACTIONS (5)
  - Cytokine release syndrome [Unknown]
  - Liver carcinoma ruptured [Unknown]
  - Immune-mediated arthritis [Unknown]
  - Immune-mediated enterocolitis [Unknown]
  - Arthralgia [Unknown]
